FAERS Safety Report 7117856-4 (Version None)
Quarter: 2010Q4

REPORT INFORMATION
  Report Type: 
  Country: None (occurrence: None)
  Receive Date: 20101118
  Receipt Date: 20101118
  Transmission Date: 20110411
  Serious: Yes (Other)
  Sender: FDA-Public Use
  Company Number: None

PATIENT
  Age: 7 Month
  Sex: Female
  Weight: 6.804 kg

DRUGS (1)
  1. HYLAND'S TEETHING TABLETS [Suspect]
     Indication: TEETHING
     Dosage: 1 TO 3   3X PER DAY DENTAL
     Route: 004
     Dates: start: 20100801, end: 20101101

REACTIONS (2)
  - CONSTIPATION [None]
  - PRODUCT QUALITY ISSUE [None]
